FAERS Safety Report 22354997 (Version 5)
Quarter: 2023Q2

REPORT INFORMATION
  Report Type: Report from Study
  Country: IL (occurrence: IL)
  Receive Date: 20230523
  Receipt Date: 20230622
  Transmission Date: 20230721
  Serious: Yes (Hospitalization)
  Sender: FDA-Public Use
  Company Number: IL-ABBVIE-4266487

PATIENT
  Age: 52 Year
  Sex: Female
  Weight: 75 kg

DRUGS (10)
  1. SKYRIZI [Suspect]
     Active Substance: RISANKIZUMAB-RZAA
     Indication: Psoriasis
     Dosage: 150 MG , 2 INJECTIONS, DRUG END DATE-2022
     Route: 058
     Dates: start: 20220803
  2. SKYRIZI [Suspect]
     Active Substance: RISANKIZUMAB-RZAA
     Dosage: 2 INJECTIONS, DRUG END DATE-2022
     Route: 058
     Dates: start: 20220831
  3. SKYRIZI [Suspect]
     Active Substance: RISANKIZUMAB-RZAA
     Dosage: 1 INJECTION
     Route: 058
     Dates: start: 20221123
  4. SKYRIZI [Suspect]
     Active Substance: RISANKIZUMAB-RZAA
     Dosage: 1 INJECTION?FORM STRENGTH: 150 MILLIGRAM?DURATION TEXT: RISANKIZUMAB PERMANENT DISCONTINUATION
     Route: 058
     Dates: start: 20230215, end: 20230607
  5. PFIZER-BIONTECH COVID-19 VACCINE [Concomitant]
     Active Substance: TOZINAMERAN
     Indication: COVID-19 immunisation
     Dosage: TIME INTERVAL: TOTAL
     Route: 030
     Dates: start: 20210128, end: 20210128
  6. PFIZER-BIONTECH COVID-19 VACCINE [Concomitant]
     Active Substance: TOZINAMERAN
     Indication: COVID-19 immunisation
     Dosage: TIME INTERVAL: TOTAL
     Route: 030
     Dates: start: 20210218, end: 20210218
  7. PFIZER-BIONTECH COVID-19 VACCINE [Concomitant]
     Active Substance: TOZINAMERAN
     Indication: COVID-19 immunisation
     Dosage: TIME INTERVAL: TOTAL
     Route: 030
     Dates: start: 20210930, end: 20210930
  8. Stator [Concomitant]
     Indication: Blood cholesterol increased
     Route: 048
     Dates: start: 2015
  9. CLOBETASOL [Concomitant]
     Active Substance: CLOBETASOL
     Indication: Psoriasis
     Dosage: FREQUENCY TEXT: AS NEEDED (PRN)
     Route: 061
     Dates: start: 2010
  10. PROTOPIC [Concomitant]
     Active Substance: TACROLIMUS
     Indication: Psoriasis
     Dosage: FREQUENCY TEXT: WHEN SKIN CONDITION WORSENS- AS NEEDED
     Route: 061
     Dates: start: 20221110

REACTIONS (4)
  - Ophthalmic herpes zoster [Recovered/Resolved]
  - Peripheral swelling [Recovered/Resolved]
  - Herpes zoster [Recovered/Resolved]
  - Varicella meningitis [Recovered/Resolved]

NARRATIVE: CASE EVENT DATE: 20220818
